FAERS Safety Report 9772264 (Version 1)
Quarter: 2013Q4

REPORT INFORMATION
  Report Type: Spontaneous
  Country: JP (occurrence: JP)
  Receive Date: 20131219
  Receipt Date: 20131219
  Transmission Date: 20140711
  Serious: Yes (Other)
  Sender: FDA-Public Use
  Company Number: JP-ASTELLAS-2013JP013955

PATIENT
  Sex: Male

DRUGS (3)
  1. BETANIS [Suspect]
     Dosage: 50 MG, UNKNOWN/D
     Route: 048
     Dates: start: 201307, end: 201308
  2. INSULIN [Concomitant]
     Indication: DIABETES MELLITUS
     Route: 065
  3. INSULIN [Concomitant]
     Route: 065

REACTIONS (1)
  - Blood glucose increased [Recovered/Resolved]
